FAERS Safety Report 4662155-3 (Version None)
Quarter: 2005Q2

REPORT INFORMATION
  Report Type: 
  Country: None (occurrence: None)
  Receive Date: 20050516
  Receipt Date: 20050512
  Transmission Date: 20051028
  Serious: Yes (Life-Threatening, Hospitalization)
  Sender: FDA-Public Use
  Company Number: PHBS2005ES06635

PATIENT
  Age: 74 Year
  Sex: Male

DRUGS (7)
  1. VOLTAREN [Suspect]
     Indication: ARTHRALGIA
     Dosage: 75 MG, QD
     Route: 030
     Dates: start: 20050315, end: 20050315
  2. VOLTAREN DOLO [Suspect]
     Indication: ARTHRALGIA
     Dosage: 100 MG, Q12H
     Route: 048
     Dates: start: 20050315, end: 20050318
  3. BOI-K [Suspect]
     Dates: start: 20000502, end: 20050318
  4. ESPIRONOLACTONA [Suspect]
     Indication: CARDIAC FAILURE CONGESTIVE
     Dosage: 100 MG, QD
     Route: 048
     Dates: start: 20000502, end: 20050318
  5. ENALAPRIL MALEATE [Suspect]
     Indication: CARDIAC FAILURE CONGESTIVE
     Dosage: 20 MG, QD
     Route: 048
     Dates: start: 20000502, end: 20050318
  6. FUROSEMIDE [Concomitant]
     Indication: CARDIAC FAILURE CONGESTIVE
     Dosage: 120 MG, BID
     Route: 048
     Dates: start: 20000502, end: 20050318
  7. CALCIUM CARBONATE [Concomitant]
     Route: 042

REACTIONS (8)
  - ARTHRALGIA [None]
  - ATRIOVENTRICULAR BLOCK COMPLETE [None]
  - BLOOD CREATININE INCREASED [None]
  - BLOOD SODIUM DECREASED [None]
  - BLOOD UREA INCREASED [None]
  - DIALYSIS [None]
  - HYPERKALAEMIA [None]
  - RENAL FAILURE ACUTE [None]
